FAERS Safety Report 26099388 (Version 1)
Quarter: 2025Q4

REPORT INFORMATION
  Report Type: Spontaneous
  Country: US (occurrence: US)
  Receive Date: 20251128
  Receipt Date: 20251128
  Transmission Date: 20260118
  Serious: No
  Sender: UNICHEM
  Company Number: US-UNICHEM LABORATORIES LIMITED-UNI-2025-US-001437

PATIENT

DRUGS (1)
  1. AMLODIPINE [Suspect]
     Active Substance: AMLODIPINE BESYLATE
     Indication: Blood pressure abnormal
     Dosage: 2.5 MILLIGRAM
     Route: 065

REACTIONS (5)
  - Blood pressure increased [Unknown]
  - Headache [Unknown]
  - Product solubility abnormal [Unknown]
  - Product quality issue [Unknown]
  - Product storage error [Unknown]
